FAERS Safety Report 8136929-0 (Version None)
Quarter: 2012Q1

REPORT INFORMATION
  Report Type: 
  Country: None (occurrence: None)
  Receive Date: 20120214
  Receipt Date: 20120210
  Transmission Date: 20120608
  Serious: Yes (Hospitalization)
  Sender: FDA-Public Use
  Company Number: US-MERCK-1002USA00810

PATIENT
  Age: 74 Year
  Sex: Female

DRUGS (11)
  1. METFORMIN [Concomitant]
     Route: 065
  2. PLAVIX [Concomitant]
     Route: 065
  3. JANUVIA [Suspect]
     Indication: DIABETES MELLITUS
     Route: 048
  4. NORVASC [Concomitant]
     Route: 065
  5. CARVEDILOL [Concomitant]
     Route: 065
  6. LISINOPRIL [Concomitant]
     Route: 065
  7. JANUVIA [Suspect]
     Route: 048
     Dates: start: 20120201
  8. GLYBURIDE [Concomitant]
     Route: 065
  9. AVANDIA [Concomitant]
     Route: 065
  10. LEVOTHYROXINE SODIUM [Concomitant]
     Route: 065
  11. ZOCOR [Suspect]
     Indication: BLOOD CHOLESTEROL INCREASED
     Route: 048
     Dates: start: 20090726

REACTIONS (4)
  - MUSCLE SPASMS [None]
  - HEPATIC ENZYME INCREASED [None]
  - MYOCARDIAL INFARCTION [None]
  - RHABDOMYOLYSIS [None]
